FAERS Safety Report 5361207-2 (Version None)
Quarter: 2007Q2

REPORT INFORMATION
  Report Type: 
  Country: None (occurrence: None)
  Receive Date: 20070530
  Receipt Date: 20070130
  Transmission Date: 20071010
  Serious: No
  Sender: FDA-Public Use
  Company Number: 2007PV029310

PATIENT
  Age: 80 Year
  Sex: Male

DRUGS (5)
  1. BYETTA [Suspect]
     Indication: DIABETES MELLITUS NON-INSULIN-DEPENDENT
     Dosage: 5 MCG; BID; SC, 10 MCG; SC
     Route: 058
     Dates: start: 20070130
  2. BYETTA [Suspect]
  3. HUMULIN 70/30 [Concomitant]
  4. METFORMIN HCL [Concomitant]
  5. HUMULIN 70/30 [Concomitant]

REACTIONS (2)
  - BLOOD GLUCOSE INCREASED [None]
  - DIZZINESS [None]
